APPROVED DRUG PRODUCT: SUPRAX
Active Ingredient: CEFIXIME
Strength: 100MG/5ML
Dosage Form/Route: FOR SUSPENSION;ORAL
Application: A065129 | Product #001
Applicant: LUPIN PHARMACEUTICALS INC
Approved: Feb 23, 2004 | RLD: No | RS: No | Type: DISCN